FAERS Safety Report 7088155-4 (Version None)
Quarter: 2010Q4

REPORT INFORMATION
  Report Type: 
  Country: None (occurrence: None)
  Receive Date: 20101028
  Receipt Date: 20101021
  Transmission Date: 20110411
  Serious: Yes (Death)
  Sender: FDA-Public Use
  Company Number: 2010AC000553

PATIENT
  Age: 82 Year

DRUGS (15)
  1. DIGOXIN [Suspect]
     Dosage: 0.125 MG; PO
     Route: 048
     Dates: start: 20080321, end: 20080502
  2. ZOCOR [Concomitant]
  3. PAXIL [Concomitant]
  4. LISINOPRIL [Concomitant]
  5. ASPIRIN [Concomitant]
  6. CARDURA [Concomitant]
  7. SIMVASTATIN [Concomitant]
  8. HYDROCHLOROTHIAZIDE [Concomitant]
  9. SINGULAIR [Concomitant]
  10. ADVAIR DISKUS 100/50 [Concomitant]
  11. VITAMINS [Concomitant]
  12. OMEGA THREE FISH OILS [Concomitant]
  13. SPIRONOLACTONE [Concomitant]
  14. POTASSIUM CHLORIDE [Concomitant]
  15. KEFLEX [Concomitant]

REACTIONS (16)
  - ABDOMINAL PAIN [None]
  - ABSCESS [None]
  - ARRHYTHMIA [None]
  - CYST [None]
  - DIASTOLIC DYSFUNCTION [None]
  - DILATATION ATRIAL [None]
  - DILATATION VENTRICULAR [None]
  - DIZZINESS [None]
  - ECONOMIC PROBLEM [None]
  - EJECTION FRACTION DECREASED [None]
  - MENTAL DISORDER [None]
  - MITRAL VALVE INCOMPETENCE [None]
  - MULTIPLE INJURIES [None]
  - PAIN [None]
  - TRICUSPID VALVE INCOMPETENCE [None]
  - VENTRICULAR HYPOKINESIA [None]
